FAERS Safety Report 5627171-3 (Version None)
Quarter: 2008Q1

REPORT INFORMATION
  Report Type: 
  Country: None (occurrence: None)
  Receive Date: 20080212
  Receipt Date: 20080212
  Transmission Date: 20080703
  Serious: Yes (Life-Threatening)
  Sender: FDA-Public Use
  Company Number: None

PATIENT
  Age: 68 Year
  Sex: Female
  Weight: 58.9676 kg

DRUGS (3)
  1. BOTOX [Suspect]
     Indication: SKIN COSMETIC PROCEDURE
     Dosage: 55 UNITS 1 IM STILL HAVING AN EFFECT
     Route: 030
     Dates: start: 20070712, end: 20080201
  2. BOTOX [Suspect]
     Indication: SKIN COSMETIC PROCEDURE
     Dosage: 100 UNITS 1 IM
     Route: 030
     Dates: start: 20070918, end: 20080201
  3. AZITHROMYCIN [Concomitant]

REACTIONS (14)
  - ASPIRATION [None]
  - COUGH [None]
  - DYSPHAGIA [None]
  - HEADACHE [None]
  - NASOPHARYNGITIS [None]
  - NAUSEA [None]
  - PULMONARY OEDEMA [None]
  - PYREXIA [None]
  - RED BLOOD CELL SEDIMENTATION RATE INCREASED [None]
  - SINUS CONGESTION [None]
  - SPUTUM DISCOLOURED [None]
  - VISUAL FIELD DEFECT [None]
  - VOMITING [None]
  - WEIGHT DECREASED [None]
